FAERS Safety Report 11414259 (Version 2)
Quarter: 2015Q3

REPORT INFORMATION
  Report Type: Spontaneous
  Country: CZ (occurrence: CZ)
  Receive Date: 20150824
  Receipt Date: 20150827
  Transmission Date: 20151125
  Serious: Yes (Other)
  Sender: FDA-Public Use
  Company Number: PHHY2015CZ099295

PATIENT
  Age: 38 Year
  Sex: Male

DRUGS (2)
  1. DOXYHEXAL [Suspect]
     Active Substance: DOXYCYCLINE
     Indication: UROGENITAL INFECTION FUNGAL
     Dosage: 200 MG
     Route: 048
     Dates: start: 20150803
  2. RAPOXOL [Concomitant]
     Indication: PRODUCT USED FOR UNKNOWN INDICATION
     Route: 065

REACTIONS (4)
  - Oral disorder [Recovered/Resolved]
  - Pruritus [Recovered/Resolved]
  - Hypersensitivity [Recovered/Resolved]
  - Erythema [Recovered/Resolved]
